FAERS Safety Report 9791224 (Version 2)
Quarter: 2016Q2

REPORT INFORMATION
  Report Type: Report from Study
  Country: US (occurrence: US)
  Receive Date: 20140101
  Receipt Date: 20160413
  Transmission Date: 20160815
  Serious: Yes (Hospitalization, Other)
  Sender: FDA-Public Use
  Company Number: US-ROCHE-1313395

PATIENT
  Age: 87 Year
  Sex: Female

DRUGS (16)
  1. COUMADIN [Concomitant]
     Active Substance: WARFARIN SODIUM
  2. FUROSEMIDE. [Concomitant]
     Active Substance: FUROSEMIDE
  3. CARTIA (UNITED STATES) [Concomitant]
  4. PRED FORTE [Concomitant]
     Active Substance: PREDNISOLONE ACETATE
     Dosage: 1DROP TWICE DAILY IN RIGHT EYE
     Route: 065
  5. TETRACAINE. [Concomitant]
     Active Substance: TETRACAINE
     Dosage: PRE-INJECTION
     Route: 065
  6. BETADINE [Concomitant]
     Active Substance: POVIDONE-IODINE
     Dosage: PRE-INJECTION
     Route: 065
  7. SYNTHROID [Concomitant]
     Active Substance: LEVOTHYROXINE SODIUM
  8. FOSAMAX [Concomitant]
     Active Substance: ALENDRONATE SODIUM
  9. CRESTOR [Concomitant]
     Active Substance: ROSUVASTATIN CALCIUM
  10. ELESTAT [Concomitant]
     Active Substance: EPINASTINE HYDROCHLORIDE
     Dosage: 1 DROP TWICE DAILY IN BOTH EYES
     Route: 065
  11. LUCENTIS [Suspect]
     Active Substance: RANIBIZUMAB
     Indication: NEOVASCULAR AGE-RELATED MACULAR DEGENERATION
     Dosage: 0.05 CC LEFT EYE
     Route: 050
     Dates: start: 20090420
  12. LUCENTIS [Suspect]
     Active Substance: RANIBIZUMAB
     Route: 050
  13. (K-DUR) POTASSIUM CHLORIDE [Concomitant]
  14. CALTRATE [Concomitant]
     Active Substance: CALCIUM CARBONATE
  15. TOBREX [Concomitant]
     Active Substance: TOBRAMYCIN
     Dosage: PRE-INJECTION
     Route: 065
  16. COZAAR [Concomitant]
     Active Substance: LOSARTAN POTASSIUM

REACTIONS (8)
  - Fall [Unknown]
  - Hip fracture [Unknown]
  - Skin cancer [Unknown]
  - Visual acuity reduced [Unknown]
  - Retinal haemorrhage [Unknown]
  - Cholecystectomy [Unknown]
  - Intraocular lens implant [Unknown]
  - Squamous cell carcinoma [Unknown]

NARRATIVE: CASE EVENT DATE: 20090902
